FAERS Safety Report 8504458-8 (Version None)
Quarter: 2012Q3

REPORT INFORMATION
  Report Type: 
  Country: None (occurrence: None)
  Receive Date: 20120711
  Receipt Date: 20120702
  Transmission Date: 20120928
  Serious: Yes (Hospitalization, Other)
  Sender: FDA-Public Use
  Company Number: US-ELI_LILLY_AND_COMPANY-US201206005947

PATIENT
  Sex: Female
  Weight: 112.93 kg

DRUGS (3)
  1. PEPCID [Concomitant]
     Dosage: 20 MG, QD
  2. BYDUREON [Suspect]
     Indication: TYPE 2 DIABETES MELLITUS
     Dosage: 2 MG, WEEKLY (1/W)
     Route: 058
     Dates: start: 20120518, end: 20120527
  3. METFORMIN HCL [Concomitant]
     Indication: TYPE 2 DIABETES MELLITUS
     Dosage: 1000 MG, BID
     Route: 048
     Dates: start: 20040101

REACTIONS (12)
  - LYMPHADENOPATHY [None]
  - PHARYNGEAL OEDEMA [None]
  - BLOOD GLUCOSE INCREASED [None]
  - PRURITUS [None]
  - DIZZINESS [None]
  - INJECTION SITE NODULE [None]
  - DYSPNOEA [None]
  - SWELLING FACE [None]
  - INJECTION SITE ERYTHEMA [None]
  - LIP SWELLING [None]
  - URTICARIA [None]
  - HYPOAESTHESIA ORAL [None]
